FAERS Safety Report 5633173-3 (Version None)
Quarter: 2008Q1

REPORT INFORMATION
  Report Type: 
  Country: None (occurrence: None)
  Receive Date: 20080221
  Receipt Date: 20080215
  Transmission Date: 20080703
  Serious: Yes (Hospitalization)
  Sender: FDA-Public Use
  Company Number: BR-AVENTIS-200716921GDDC

PATIENT
  Age: 29 Year
  Sex: Female
  Weight: 56 kg

DRUGS (2)
  1. LANTUS [Suspect]
     Indication: TYPE 1 DIABETES MELLITUS
     Route: 058
     Dates: start: 20070721, end: 20071130
  2. OPTIPEN (INSULIN PUMP) [Suspect]
     Route: 058
     Dates: start: 20070721, end: 20071130

REACTIONS (4)
  - BLOOD GLUCOSE ABNORMAL [None]
  - DRUG EXPOSURE DURING PREGNANCY [None]
  - PRE-ECLAMPSIA [None]
  - THREATENED LABOUR [None]
